FAERS Safety Report 19722814 (Version 1)
Quarter: 2021Q3

REPORT INFORMATION
  Report Type: Spontaneous
  Country: US (occurrence: US)
  Receive Date: 20210819
  Receipt Date: 20210819
  Transmission Date: 20211014
  Serious: Yes (Life-Threatening, Hospitalization, Other)
  Sender: FDA-Public Use
  Company Number: US-PFIZER INC-202100974399

PATIENT
  Age: 28 Year
  Sex: Female

DRUGS (1)
  1. METHOTREXATE SODIUM. [Suspect]
     Active Substance: METHOTREXATE SODIUM
     Dosage: UNK (INJECTION)
     Route: 030

REACTIONS (5)
  - Drug ineffective [Recovered/Resolved]
  - Pulmonary oedema [Recovering/Resolving]
  - Sepsis [Recovering/Resolving]
  - Vaginal haemorrhage [Recovered/Resolved]
  - Acute kidney injury [Recovered/Resolved]
